FAERS Safety Report 10289772 (Version 1)
Quarter: 2014Q3

REPORT INFORMATION
  Report Type: Spontaneous
  Country: SI (occurrence: SI)
  Receive Date: 20140710
  Receipt Date: 20140710
  Transmission Date: 20150326
  Serious: Yes (Life-Threatening, Other)
  Sender: FDA-Public Use
  Company Number: SI-JNJFOC-20140705406

PATIENT
  Age: 91 Year
  Sex: Female

DRUGS (9)
  1. EBIXA [Concomitant]
     Active Substance: MEMANTINE HYDROCHLORIDE
     Route: 065
  2. HALDOL [Concomitant]
     Active Substance: HALOPERIDOL
     Route: 065
  3. LANITOP [Concomitant]
     Active Substance: METILDIGOXIN
     Route: 065
  4. XARELTO [Suspect]
     Active Substance: RIVAROXABAN
     Indication: ATRIAL FIBRILLATION
     Route: 048
     Dates: end: 20140308
  5. RISPERDAL [Concomitant]
     Active Substance: RISPERIDONE
     Route: 065
  6. XARELTO [Suspect]
     Active Substance: RIVAROXABAN
     Indication: CEREBROVASCULAR ACCIDENT PROPHYLAXIS
     Route: 048
     Dates: end: 20140308
  7. AMPRIL [Concomitant]
     Route: 065
  8. EDEMID [Concomitant]
     Route: 065
  9. CIPRALEX [Concomitant]
     Active Substance: ESCITALOPRAM OXALATE
     Route: 065

REACTIONS (7)
  - Female genital tract fistula [Unknown]
  - Haematochezia [Unknown]
  - Condition aggravated [Unknown]
  - Rectal haemorrhage [Unknown]
  - Lower gastrointestinal haemorrhage [Recovered/Resolved]
  - Haemoglobin decreased [Unknown]
  - Anal haemorrhage [Unknown]

NARRATIVE: CASE EVENT DATE: 20140308
